FAERS Safety Report 5492450-X (Version None)
Quarter: 2007Q4

REPORT INFORMATION
  Report Type: 
  Country: None (occurrence: None)
  Receive Date: 20071015
  Receipt Date: 20070730
  Transmission Date: 20080405
  Serious: No
  Sender: FDA-Public Use
  Company Number: 2007SP002690

PATIENT
  Age: 51 Year
  Sex: Female

DRUGS (8)
  1. LUNESTA [Suspect]
     Indication: INSOMNIA
     Dosage: 2 MG HS ORAL
     Route: 048
     Dates: start: 20070725, end: 20070727
  2. ATRIPLA [Concomitant]
  3. BETAPACE [Concomitant]
  4. WARFARIN SODIUM [Concomitant]
  5. ISOSORBIDE DINITRATE [Concomitant]
  6. VYTORIN [Concomitant]
  7. CARTIA XT [Concomitant]
  8. NITRO-DUR [Concomitant]

REACTIONS (7)
  - BLOOD PRESSURE INCREASED [None]
  - CARDIAC FLUTTER [None]
  - CHEST PAIN [None]
  - DYSPNOEA [None]
  - FATIGUE [None]
  - INSOMNIA [None]
  - RESTLESSNESS [None]
